FAERS Safety Report 5353861-6 (Version None)
Quarter: 2007Q2

REPORT INFORMATION
  Report Type: 
  Country: None (occurrence: None)
  Receive Date: 20070612
  Receipt Date: 20070531
  Transmission Date: 20071010
  Serious: No
  Sender: FDA-Public Use
  Company Number: US-ASTRAZENECA-2006UW08406

PATIENT
  Age: 42 Year
  Sex: Female
  Weight: 122.7 kg

DRUGS (3)
  1. SEROQUEL [Suspect]
     Indication: DEPRESSION
     Dosage: 200 TO 400 MG
     Route: 048
     Dates: start: 19940101, end: 20040101
  2. SEROQUEL [Suspect]
     Indication: SCHIZOPHRENIA
     Dosage: 200 TO 400 MG
     Route: 048
     Dates: start: 19940101, end: 20040101
  3. SEROQUEL [Suspect]
     Indication: INSOMNIA
     Dosage: 200 TO 400 MG
     Route: 048
     Dates: start: 19940101, end: 20040101

REACTIONS (1)
  - DIABETES MELLITUS [None]
